FAERS Safety Report 18136222 (Version 7)
Quarter: 2021Q3

REPORT INFORMATION
  Report Type: Report from Study
  Country: FR (occurrence: FR)
  Receive Date: 20200811
  Receipt Date: 20210726
  Transmission Date: 20211014
  Serious: Yes (Other)
  Sender: FDA-Public Use
  Company Number: FR-JNJFOC-20200747769

PATIENT
  Age: 58 Year
  Sex: Female
  Weight: 78 kg

DRUGS (14)
  1. NOCTAMIDE [Concomitant]
     Active Substance: LORMETAZEPAM
  2. SPRAVATO [Suspect]
     Active Substance: ESKETAMINE
     Dosage: TOTAL OF 5 DOSES
     Dates: start: 20200429, end: 20200515
  3. LOXAPAC [LOXAPINE] [Concomitant]
     Active Substance: LOXAPINE
     Indication: PSYCHOTIC DISORDER
     Dates: start: 20171110, end: 20180509
  4. SPRAVATO [Suspect]
     Active Substance: ESKETAMINE
     Indication: DEPRESSION
     Dosage: TOTAL 3 DOSES
     Dates: start: 20200421, end: 20200427
  5. MIANSERINE [MIANSERIN] [Concomitant]
     Active Substance: MIANSERIN HYDROCHLORIDE
     Indication: ANTIDEPRESSANT THERAPY
     Dates: start: 20200421
  6. LITHIUM. [Concomitant]
     Active Substance: LITHIUM
     Dates: start: 20191129
  7. LOXAPAC [LOXAPINE] [Concomitant]
     Active Substance: LOXAPINE
     Dates: start: 20190515, end: 20190614
  8. LAMOTRIGINE. [Concomitant]
     Active Substance: LAMOTRIGINE
     Indication: EPILEPSY
     Dates: start: 20171110
  9. LOXAPAC [LOXAPINE] [Concomitant]
     Active Substance: LOXAPINE
     Dates: start: 20190614
  10. LOXAPAC [LOXAPINE] [Concomitant]
     Active Substance: LOXAPINE
     Dates: start: 20171109, end: 20190514
  11. DIAZEPAM. [Concomitant]
     Active Substance: DIAZEPAM
     Indication: PROPHYLAXIS
     Dates: start: 20170326
  12. LITHIUM. [Concomitant]
     Active Substance: LITHIUM
     Indication: DRUG THERAPY
     Dates: start: 20171031
  13. QUETIAPINE. [Concomitant]
     Active Substance: QUETIAPINE
     Indication: PSYCHOTIC DISORDER
     Dates: start: 20200224
  14. DIAZEPAM. [Concomitant]
     Active Substance: DIAZEPAM
     Dates: start: 20190514

REACTIONS (6)
  - Bladder pain [Recovered/Resolved]
  - Off label use [Unknown]
  - Product use issue [Unknown]
  - Paralysis [Recovered/Resolved]
  - Patient dissatisfaction with treatment [Recovered/Resolved]
  - Drug ineffective [Recovered/Resolved]

NARRATIVE: CASE EVENT DATE: 20200421
